FAERS Safety Report 8205820-3 (Version None)
Quarter: 2012Q1

REPORT INFORMATION
  Report Type: 
  Country: None (occurrence: None)
  Receive Date: 20120313
  Receipt Date: 20120302
  Transmission Date: 20120608
  Serious: Yes (Other)
  Sender: FDA-Public Use
  Company Number: DE-TEVA-323468GER

PATIENT
  Sex: Male
  Weight: 86 kg

DRUGS (12)
  1. ASPIRIN [Concomitant]
     Indication: CORONARY ARTERY DISEASE
     Dosage: 100 MILLIGRAM;
  2. DELMUNO [Concomitant]
     Indication: HYPERTENSION
     Dosage: 2.5 MILLIGRAM;
  3. DOCETAXEL [Suspect]
     Route: 042
     Dates: start: 20110621
  4. RAMIPRIL [Concomitant]
     Indication: CORONARY ARTERY DISEASE
     Dosage: 2.5 MILLIGRAM;
  5. GRANISETRON [Concomitant]
     Indication: PREMEDICATION
     Dosage: 1 MILLIGRAM;
     Route: 042
  6. RADIATION THERAPY [Concomitant]
     Dates: start: 20110801
  7. CARBOPLATIN [Suspect]
     Indication: OROPHARYNGEAL CANCER STAGE UNSPECIFIED
     Dosage: 340 MILLIGRAM;
  8. RADIATION THERAPY [Concomitant]
     Indication: OROPHARYNGEAL CANCER STAGE UNSPECIFIED
     Dates: start: 20110523, end: 20110630
  9. DOCETAXEL [Suspect]
     Indication: OROPHARYNGEAL CANCER STAGE UNSPECIFIED
     Route: 042
     Dates: start: 20110523
  10. DEXAMETHASONE SODIUM PHOSPHATE [Concomitant]
     Dosage: 16 MILLIGRAM;
     Route: 048
  11. FLUOROURACIL [Suspect]
     Indication: OROPHARYNGEAL CANCER STAGE UNSPECIFIED
  12. BISOPROLOL FUMARATE [Concomitant]
     Indication: CORONARY ARTERY DISEASE
     Dosage: 5 MILLIGRAM;

REACTIONS (4)
  - LEUKOPENIA [None]
  - MUCOSAL INFLAMMATION [None]
  - FEBRILE NEUTROPENIA [None]
  - FLUID INTAKE REDUCED [None]
